FAERS Safety Report 8344105-1 (Version None)
Quarter: 2012Q2

REPORT INFORMATION
  Report Type: 
  Country: None (occurrence: None)
  Receive Date: 20120504
  Receipt Date: 20110910
  Transmission Date: 20120825
  Serious: Yes (Hospitalization)
  Sender: FDA-Public Use
  Company Number: 2011AP002035

PATIENT
  Age: 76 Year
  Sex: Female

DRUGS (5)
  1. GABAPENTIN [Suspect]
     Indication: DIABETIC NEUROPATHY
     Dosage: 1200 MG, QW8H
  2. GABAPENTIN [Suspect]
     Indication: OFF LABEL USE
     Dosage: 1200 MG, QW8H
  3. ZOLPIDEM [Concomitant]
  4. GLYBURIDE [Concomitant]
  5. OXYCODONE HCL AND ACETAMINOPHEN [Concomitant]

REACTIONS (5)
  - DRUG WITHDRAWAL SYNDROME [None]
  - AKATHISIA [None]
  - PAIN IN EXTREMITY [None]
  - ANXIETY [None]
  - AGITATION [None]
